FAERS Safety Report 7864148-1 (Version None)
Quarter: 2011Q4

REPORT INFORMATION
  Report Type: 
  Country: None (occurrence: None)
  Receive Date: 20111028
  Receipt Date: 20111024
  Transmission Date: 20120403
  Serious: Yes (Hospitalization)
  Sender: FDA-Public Use
  Company Number: US-JNJFOC-20110507151

PATIENT
  Sex: Female
  Weight: 92 kg

DRUGS (4)
  1. GOLIMUMAB [Suspect]
     Indication: RHEUMATOID ARTHRITIS
     Route: 058
     Dates: start: 20110622
  2. GOLIMUMAB [Suspect]
     Route: 058
     Dates: start: 20110527
  3. GOLIMUMAB [Suspect]
     Route: 058
     Dates: start: 20110421
  4. GOLIMUMAB [Suspect]
     Route: 058
     Dates: start: 20110711

REACTIONS (2)
  - UROSEPSIS [None]
  - DEHYDRATION [None]
